FAERS Safety Report 9597908 (Version 1)
Quarter: 2013Q4

REPORT INFORMATION
  Report Type: Spontaneous
  Country: US (occurrence: US)
  Receive Date: 20131004
  Receipt Date: 20131004
  Transmission Date: 20140711
  Serious: No
  Sender: FDA-Public Use
  Company Number: US-AMGEN-USASP2013021949

PATIENT
  Age: 67 Year
  Sex: Female
  Weight: 113.38 kg

DRUGS (10)
  1. ENBREL [Suspect]
     Indication: PSORIASIS
     Dosage: UNK
     Dates: start: 2009, end: 2011
  2. VITAMIN B [Concomitant]
     Dosage: UNK
  3. TRAZODONE [Concomitant]
     Dosage: UNK
  4. L-LYSINE                           /00919901/ [Concomitant]
     Dosage: UNK
  5. OMEPRAZOLE [Concomitant]
     Dosage: UNK
  6. HYDROXYZINE [Concomitant]
     Dosage: UNK
  7. FOLIC ACID [Concomitant]
     Dosage: UNK
  8. CYMBALTA [Concomitant]
     Dosage: UNK
  9. CALCIUM + VITAMIN D [Concomitant]
     Dosage: UNK
  10. CLOBETASOL [Concomitant]
     Dosage: UNK

REACTIONS (1)
  - Drug ineffective [Recovered/Resolved]
